FAERS Safety Report 10203373 (Version 1)
Quarter: 2014Q2

REPORT INFORMATION
  Report Type: Spontaneous
  Country: AU (occurrence: AU)
  Receive Date: 20140529
  Receipt Date: 20140529
  Transmission Date: 20141212
  Serious: Yes (Other)
  Sender: FDA-Public Use
  Company Number: AU-BAYER-2014-064903

PATIENT
  Sex: Male

DRUGS (2)
  1. KOGENATE FS [Suspect]
     Indication: FACTOR VIII DEFICIENCY
  2. KOGENATE FS [Suspect]
     Indication: HAEMORRHAGE PROPHYLAXIS

REACTIONS (2)
  - Haemorrhage [None]
  - Headache [Recovered/Resolved]
